FAERS Safety Report 20876756 (Version 1)
Quarter: 2022Q2

REPORT INFORMATION
  Report Type: Spontaneous
  Country: US (occurrence: None)
  Receive Date: 20220526
  Receipt Date: 20220526
  Transmission Date: 20220721
  Serious: Yes (Other)
  Sender: FDA-Public Use
  Company Number: 2022A197611

PATIENT

DRUGS (1)
  1. KOSELUGO [Suspect]
     Active Substance: SELUMETINIB
     Route: 048

REACTIONS (5)
  - Renal failure [Unknown]
  - Retinal detachment [Unknown]
  - Nausea [Unknown]
  - Alopecia [Unknown]
  - Limb injury [Unknown]
